FAERS Safety Report 18398075 (Version 1)
Quarter: 2020Q4

REPORT INFORMATION
  Report Type: Spontaneous
  Country: US (occurrence: US)
  Receive Date: 20201019
  Receipt Date: 20201019
  Transmission Date: 20210114
  Serious: Yes (Other)
  Sender: FDA-Public Use
  Company Number: None

PATIENT
  Age: 75 Year
  Sex: Male
  Weight: 56.4 kg

DRUGS (6)
  1. PANTOPRAZOLE [Concomitant]
     Active Substance: PANTOPRAZOLE
  2. AMLODIPINE [Concomitant]
     Active Substance: AMLODIPINE BESYLATE
  3. METFORMIN [Concomitant]
     Active Substance: METFORMIN HYDROCHLORIDE
  4. JARDIANCE [Concomitant]
     Active Substance: EMPAGLIFLOZIN
  5. REVLIMID [Suspect]
     Active Substance: LENALIDOMIDE
     Indication: PLASMA CELL MYELOMA
     Dates: start: 20200924, end: 20201016
  6. ACYCLOVIR. [Concomitant]
     Active Substance: ACYCLOVIR

REACTIONS (1)
  - Thrombosis [None]

NARRATIVE: CASE EVENT DATE: 20201016
